FAERS Safety Report 7900047-4 (Version None)
Quarter: 2011Q4

REPORT INFORMATION
  Report Type: 
  Country: None (occurrence: None)
  Receive Date: 20111108
  Receipt Date: 20111031
  Transmission Date: 20120403
  Serious: Yes (Other)
  Sender: FDA-Public Use
  Company Number: CO-BIOGENIDEC-2011BI038259

PATIENT
  Age: 56 Year
  Sex: Female
  Weight: 70 kg

DRUGS (2)
  1. ETORICOXIB [Concomitant]
     Indication: ARTHRALGIA
     Route: 048
     Dates: start: 20110201
  2. TYSABRI [Suspect]
     Indication: MULTIPLE SCLEROSIS
     Route: 042
     Dates: start: 20110401, end: 20110901

REACTIONS (1)
  - SJOGREN'S SYNDROME [None]
